FAERS Safety Report 8012462-1 (Version None)
Quarter: 2011Q4

REPORT INFORMATION
  Report Type: 
  Country: None (occurrence: None)
  Receive Date: 20111228
  Receipt Date: 20111221
  Transmission Date: 20120403
  Serious: Yes (Life-Threatening, Hospitalization)
  Sender: FDA-Public Use
  Company Number: ZA-GILEAD-2011-0048460

PATIENT
  Sex: Male

DRUGS (7)
  1. BLINDED EMTRICITABINE/TENOFOVIR DISOPROXIL FUMARATE [Suspect]
     Indication: HIV INFECTION
     Dosage: UNK
     Route: 048
     Dates: start: 20111117, end: 20111215
  2. DIPHENHYDRAMINE HCL [Concomitant]
     Indication: UPPER RESPIRATORY TRACT INFECTION
     Dosage: UNK
     Dates: start: 20111202, end: 20111202
  3. EFAVIRENZ [Suspect]
     Indication: HIV INFECTION
     Dosage: UNK
     Route: 048
     Dates: start: 20111117, end: 20111215
  4. AMITRIPTYLINE [Concomitant]
     Indication: POST HERPETIC NEURALGIA
     Dosage: UNK
     Dates: start: 20111205, end: 20111215
  5. BLINDED PLACEBO [Suspect]
     Indication: HIV INFECTION
     Dosage: UNK
     Route: 048
     Dates: start: 20111117, end: 20111215
  6. IBUPROFEN [Concomitant]
     Indication: POST HERPETIC NEURALGIA
     Dosage: UNK
     Dates: start: 20111215, end: 20111215
  7. AMOXICILLIN [Concomitant]
     Indication: UPPER RESPIRATORY TRACT INFECTION
     Dosage: UNK
     Dates: start: 20111202, end: 20111202

REACTIONS (3)
  - ABNORMAL LOSS OF WEIGHT [None]
  - CREATININE RENAL CLEARANCE DECREASED [None]
  - RENAL FAILURE [None]
